APPROVED DRUG PRODUCT: TOPOTECAN HYDROCHLORIDE
Active Ingredient: TOPOTECAN HYDROCHLORIDE
Strength: EQ 4MG BASE/VIAL
Dosage Form/Route: INJECTABLE;INJECTION
Application: A202351 | Product #001 | TE Code: AP
Applicant: ACCORD HEALTHCARE INC
Approved: Jun 26, 2013 | RLD: No | RS: No | Type: RX